FAERS Safety Report 6363468-X (Version None)
Quarter: 2009Q3

REPORT INFORMATION
  Report Type: 
  Country: None (occurrence: None)
  Receive Date: 20090919
  Receipt Date: 20090630
  Transmission Date: 20100115
  Serious: No
  Sender: FDA-Public Use
  Company Number: US-ABBOTT-09P-163-0582726-00

PATIENT
  Sex: Female

DRUGS (3)
  1. HUMIRA [Suspect]
     Indication: PSORIATIC ARTHROPATHY
     Dates: start: 20090525
  2. HUMIRA [Suspect]
     Indication: PSORIASIS
  3. RESTASIS [Concomitant]
     Indication: DRUG USE FOR UNKNOWN INDICATION
     Dates: start: 20080601

REACTIONS (13)
  - EAR PAIN [None]
  - EYE SWELLING [None]
  - FEELING HOT [None]
  - HEADACHE [None]
  - INJECTION SITE ERYTHEMA [None]
  - INJECTION SITE HAEMATOMA [None]
  - INJECTION SITE INFECTION [None]
  - INJECTION SITE PAPULE [None]
  - INJECTION SITE WARMTH [None]
  - PHOTOPHOBIA [None]
  - SWELLING FACE [None]
  - VISUAL IMPAIRMENT [None]
  - WEIGHT INCREASED [None]
